FAERS Safety Report 9563167 (Version 2)
Quarter: 2013Q3

REPORT INFORMATION
  Report Type: Spontaneous
  Country: US (occurrence: US)
  Receive Date: 20130927
  Receipt Date: 20130927
  Transmission Date: 20140515
  Serious: Yes (Hospitalization)
  Sender: FDA-Public Use
  Company Number: US-BRISTOL-MYERS SQUIBB COMPANY-18733352

PATIENT
  Age: 86 Year
  Sex: 0

DRUGS (1)
  1. ONGLYZA TABS 2.5 MG [Suspect]
     Dosage: ADMINISTERED VIA PEG TUBE.

REACTIONS (1)
  - Adverse event [Unknown]
